FAERS Safety Report 10247423 (Version 2)
Quarter: 2014Q4

REPORT INFORMATION
  Report Type: Spontaneous
  Country: IT (occurrence: None)
  Receive Date: 20140617
  Receipt Date: 20141017
  Transmission Date: 20150528
  Serious: Yes (Hospitalization)
  Sender: FDA-Public Use
  Company Number: 7298386

PATIENT
  Age: 54 Year
  Sex: Female

DRUGS (4)
  1. EUTIROX (LEVOTHYROXINE SODIUM) (LEVOTHYROXINE SODIUM) [Suspect]
     Active Substance: LEVOTHYROXINE SODIUM
     Indication: HYPOTHYROIDISM
     Dosage: 50 MCG ON EVEN DAYS AND 75 MCG ON ODD DAYS (1 DF, DAILY), ORAL
     Route: 048
     Dates: start: 20140402, end: 20140407
  2. LORAZEPAM (LORAZEPAM) (LORAZEPAM) [Concomitant]
     Active Substance: LORAZEPAM
  3. ENAPREN (ENALAPRIL MALEATE) (ENALAPRIL MALEATE) [Concomitant]
  4. BISOPROLOL (BISOPROLOL) (BISOPROLOL) [Concomitant]

REACTIONS (2)
  - Hyperthyroidism [None]
  - Palpitations [None]

NARRATIVE: CASE EVENT DATE: 20140402
